FAERS Safety Report 25069844 (Version 1)
Quarter: 2025Q1

REPORT INFORMATION
  Report Type: Spontaneous
  Country: US (occurrence: US)
  Receive Date: 20250312
  Receipt Date: 20250312
  Transmission Date: 20250409
  Serious: No
  Sender: BRISTOL-MYERS SQUIBB COMPANY
  Company Number: US-BRISTOL-MYERS SQUIBB COMPANY-2025-037341

PATIENT
  Age: 34 Year
  Sex: Female
  Weight: 58.06 kg

DRUGS (1)
  1. AUGTYRO [Suspect]
     Active Substance: REPOTRECTINIB
     Indication: Non-small cell lung cancer
     Route: 048
     Dates: start: 20250120, end: 20250305

REACTIONS (3)
  - Ocular discomfort [Unknown]
  - Neck pain [Unknown]
  - Pain in jaw [Unknown]
